FAERS Safety Report 4864203-4 (Version None)
Quarter: 2005Q4

REPORT INFORMATION
  Report Type: 
  Country: None (occurrence: None)
  Receive Date: 20051219
  Receipt Date: 20051207
  Transmission Date: 20060501
  Serious: Yes (Other)
  Sender: FDA-Public Use
  Company Number: 2005EU002740

PATIENT
  Age: 65 Year
  Sex: Female

DRUGS (2)
  1. PROTOPIC [Suspect]
     Dosage: TOPICAL
     Route: 061
  2. ELIDEL (PIMECROLIMUS, PIMECROLIMUS) CREAM, 1% [Suspect]
     Dosage: TOPICAL
     Route: 061

REACTIONS (1)
  - BREAST CANCER FEMALE [None]
